FAERS Safety Report 25301286 (Version 1)
Quarter: 2025Q2

REPORT INFORMATION
  Report Type: Spontaneous
  Country: US (occurrence: None)
  Receive Date: 20250511
  Receipt Date: 20250511
  Transmission Date: 20250717
  Serious: Yes (Hospitalization, Disabling, Other)
  Sender: FDA-CTU
  Company Number: None

PATIENT
  Age: 45 Year
  Sex: Female
  Weight: 55.35 kg

DRUGS (8)
  1. BETASERON [Suspect]
     Active Substance: INTERFERON BETA-1B
     Indication: Multiple sclerosis
     Dates: start: 20040101, end: 20151001
  2. OXYGEN [Concomitant]
     Active Substance: OXYGEN
  3. DEVICE [Concomitant]
     Active Substance: DEVICE
  4. OXYCODONE [Concomitant]
     Active Substance: OXYCODONE
  5. SULFASALAZINE [Concomitant]
     Active Substance: SULFASALAZINE
  6. gabapantin [Concomitant]
  7. D [Concomitant]
  8. c [Concomitant]

REACTIONS (8)
  - Loss of consciousness [None]
  - Pulmonary fibrosis [None]
  - Osteonecrosis [None]
  - Lupus-like syndrome [None]
  - Disability [None]
  - Gait inability [None]
  - Impaired work ability [None]
  - Oxygen consumption increased [None]

NARRATIVE: CASE EVENT DATE: 20141001
